FAERS Safety Report 10657449 (Version 3)
Quarter: 2014Q4

REPORT INFORMATION
  Report Type: Spontaneous
  Country: JP (occurrence: None)
  Receive Date: 20141215
  Receipt Date: 20141231
  Transmission Date: 20150529
  Serious: Yes (Hospitalization, Other)
  Sender: FDA-Public Use
  Company Number: JP2014JPN032883

PATIENT
  Age: 07 Decade
  Sex: Male

DRUGS (3)
  1. ISENTRESS [Suspect]
     Active Substance: RALTEGRAVIR POTASSIUM
     Route: 048
  2. EPIVIR [Suspect]
     Active Substance: LAMIVUDINE
     Route: 048
  3. ZIAGEN [Suspect]
     Active Substance: ABACAVIR SULFATE
     Route: 048

REACTIONS (12)
  - Platelet count decreased [None]
  - Immune reconstitution inflammatory syndrome [None]
  - Coagulation test abnormal [None]
  - Histiocytosis haematophagic [None]
  - Lymph node pain [None]
  - Hepatic function abnormal [None]
  - Oliguria [None]
  - Renal disorder [None]
  - Disseminated intravascular coagulation [None]
  - Pyrexia [None]
  - Inflammation [None]
  - Shock [None]
